FAERS Safety Report 24903828 (Version 2)
Quarter: 2025Q1

REPORT INFORMATION
  Report Type: Report from Study
  Country: US (occurrence: US)
  Receive Date: 20250130
  Receipt Date: 20250325
  Transmission Date: 20250409
  Serious: No
  Sender: SUNOVION
  Company Number: US-SMPA-2025SPA000750AA

PATIENT

DRUGS (13)
  1. ORGOVYX [Suspect]
     Active Substance: RELUGOLIX
     Indication: Prostate cancer
     Dosage: 360 MG, SINGLE
     Route: 048
     Dates: start: 20241223, end: 20241223
  2. ORGOVYX [Suspect]
     Active Substance: RELUGOLIX
     Dosage: 120 MG, QD
     Route: 048
     Dates: start: 20241224
  3. Chromium complex [Concomitant]
     Route: 065
  4. FINASTERIDE [Concomitant]
     Active Substance: FINASTERIDE
     Route: 065
  5. Florify [Concomitant]
     Route: 065
  6. Prostaco [Concomitant]
     Route: 065
  7. ProstAvan [Concomitant]
     Route: 065
  8. QUERCETIN [Concomitant]
     Active Substance: QUERCETIN
     Route: 065
  9. Spleen [Concomitant]
     Route: 065
  10. HERBALS\TURMERIC [Concomitant]
     Active Substance: HERBALS\TURMERIC
     Route: 065
  11. ZINC [Concomitant]
     Active Substance: ZINC
     Route: 065
  12. ADVIL [Concomitant]
     Active Substance: IBUPROFEN
     Route: 065
  13. PRAVASTATIN [Concomitant]
     Active Substance: PRAVASTATIN
     Route: 065

REACTIONS (4)
  - Presyncope [Unknown]
  - Fatigue [Recovering/Resolving]
  - Arthralgia [Unknown]
  - Myalgia [Unknown]

NARRATIVE: CASE EVENT DATE: 20250201
